FAERS Safety Report 11117947 (Version 1)
Quarter: 2015Q2

REPORT INFORMATION
  Report Type: Report from Study
  Country: CO (occurrence: CO)
  Receive Date: 20150518
  Receipt Date: 20150518
  Transmission Date: 20150821
  Serious: Yes (Hospitalization)
  Sender: FDA-Public Use
  Company Number: CO-ABBVIE-15K-036-1392619-00

PATIENT
  Age: 71 Year
  Sex: Male

DRUGS (1)
  1. HUMIRA [Suspect]
     Active Substance: ADALIMUMAB
     Indication: RHEUMATOID ARTHRITIS
     Route: 058
     Dates: start: 20101011, end: 20130722

REACTIONS (5)
  - Kidney infection [Recovering/Resolving]
  - Respiratory tract infection [Recovering/Resolving]
  - Back pain [Recovering/Resolving]
  - Pyrexia [Recovering/Resolving]
  - Dysuria [Recovering/Resolving]

NARRATIVE: CASE EVENT DATE: 20150425
